FAERS Safety Report 23723021 (Version 1)
Quarter: 2024Q2

REPORT INFORMATION
  Report Type: Spontaneous
  Country: US (occurrence: None)
  Receive Date: 20240408
  Receipt Date: 20240408
  Transmission Date: 20240716
  Serious: Yes (Death)
  Sender: FDA-Public Use
  Company Number: None

PATIENT
  Age: 63 Year
  Sex: Male

DRUGS (45)
  1. SEROSTIM [Suspect]
     Active Substance: SOMATROPIN
     Indication: HIV wasting syndrome
     Dosage: FREQUENCY : DAILY;?
     Route: 058
     Dates: start: 20221103
  2. ACETAMINOPHEN [Concomitant]
     Active Substance: ACETAMINOPHEN
  3. ANASTROZOLE [Concomitant]
     Active Substance: ANASTROZOLE
  4. AZELASTINE [Concomitant]
     Active Substance: AZELASTINE\AZELASTINE HYDROCHLORIDE
  5. BACLOFEN [Concomitant]
  6. BENZTROPINE [Concomitant]
     Active Substance: BENZTROPINE
  7. BUSPIRONE [Concomitant]
     Active Substance: BUSPIRONE HYDROCHLORIDE
  8. CARISOPRODOL [Concomitant]
     Active Substance: CARISOPRODOL
  9. ZVRTEC [Concomitant]
  10. CHLOPROMAZINE [Concomitant]
  11. IBUPROFEN [Concomitant]
     Active Substance: IBUPROFEN
  12. VITAMIN D [Concomitant]
     Active Substance: VITAMIN D NOS
  13. GAS-X [Concomitant]
     Active Substance: DIMETHICONE
  14. CLOMID [Concomitant]
     Active Substance: CLOMIPHENE CITRATE
  15. CYANOCOBALAMIN [Concomitant]
     Active Substance: CYANOCOBALAMIN
  16. ELIQUIS [Concomitant]
     Active Substance: APIXABAN
  17. ALLEGRA [Concomitant]
     Active Substance: FEXOFENADINE HYDROCHLORIDE
  18. DIFLUCAN [Concomitant]
     Active Substance: FLUCONAZOLE
  19. FLUNISOLIDE [Concomitant]
     Active Substance: FLUNISOLIDE
  20. FLUTICASONE [Concomitant]
     Active Substance: FLUTICASONE
  21. GABAPENTIN [Concomitant]
     Active Substance: GABAPENTIN
  22. HYDROXYZINE [Concomitant]
     Active Substance: HYDROXYZINE HYDROCHLORIDE
  23. INGREZZA [Concomitant]
     Active Substance: VALBENAZINE
  24. LAMOTRIGINE [Concomitant]
     Active Substance: LAMOTRIGINE
  25. LOSARTAN [Concomitant]
     Active Substance: LOSARTAN
  26. MARAVIDE [Concomitant]
  27. MUCINEX [Concomitant]
     Active Substance: GUAIFENESIN
  28. NEXIUM [Concomitant]
     Active Substance: ESOMEPRAZOLE MAGNESIUM
  29. OXANDROLONE [Concomitant]
     Active Substance: OXANDROLONE
  30. TRAZODONE [Concomitant]
     Active Substance: TRAZODONE HYDROCHLORIDE
  31. TRIUMEG [Concomitant]
  32. VOLCYCLOVIR [Concomitant]
  33. VASCEPA [Concomitant]
     Active Substance: ICOSAPENT ETHYL
  34. MIRALAX [Concomitant]
     Active Substance: POLYETHYLENE GLYCOL 3350
  35. PREZCOLOIX [Concomitant]
  36. QUETIZAPINE [Concomitant]
  37. PRESUVASTATIN [Concomitant]
  38. SERTRALINE [Concomitant]
     Active Substance: SERTRALINE HYDROCHLORIDE
  39. SUDOEPHEDRINE [Concomitant]
  40. BACTRIM DS [Concomitant]
     Active Substance: SULFAMETHOXAZOLE\TRIMETHOPRIM
  41. TAMSULOSIN HYDROCHLORIDE [Concomitant]
     Active Substance: TAMSULOSIN HYDROCHLORIDE
  42. TEMAZEPAM [Concomitant]
     Active Substance: TEMAZEPAM
  43. TESTOSTERONE [Concomitant]
     Active Substance: TESTOSTERONE
  44. TIVICAY [Concomitant]
     Active Substance: DOLUTEGRAVIR SODIUM
  45. TOPIRAMATE [Concomitant]
     Active Substance: TOPIRAMATE

REACTIONS (1)
  - Death [None]

NARRATIVE: CASE EVENT DATE: 20240405
